FAERS Safety Report 18455835 (Version 7)
Quarter: 2021Q3

REPORT INFORMATION
  Report Type: Report from Study
  Country: CN (occurrence: CN)
  Receive Date: 20201102
  Receipt Date: 20210726
  Transmission Date: 20211014
  Serious: Yes (Hospitalization)
  Sender: FDA-Public Use
  Company Number: CN-ROCHE-2704022

PATIENT
  Age: 47 Year
  Sex: Female
  Weight: 52 kg

DRUGS (27)
  1. BEVACIZUMAB. [Suspect]
     Active Substance: BEVACIZUMAB
     Indication: NON-SMALL CELL LUNG CANCER
     Dosage: DAY 1 OF EACH 21?DAY CYCLE.?ON 09/OCT/2020, SHE RECEIVED MOST RECENT DOSE (795 MG) OF BEVACIZUMAB PR
     Route: 042
     Dates: start: 20200525
  2. OMEPRAZOLE SODIUM [Concomitant]
     Active Substance: OMEPRAZOLE SODIUM
     Dates: start: 20201029, end: 20201113
  3. CARBOPLATIN. [Suspect]
     Active Substance: CARBOPLATIN
     Indication: NON-SMALL CELL LUNG CANCER
     Dosage: INITIAL TARGET AUC OF 6 MG/ML/MIN.?ON 05/AUG/2020, SHE RECEIVED MOST RECENT DOSE (554 MG) OF CARBOPL
     Route: 042
     Dates: start: 20200525
  4. PALONOSETRON HYDROCHLORIDE. [Concomitant]
     Active Substance: PALONOSETRON HYDROCHLORIDE
     Indication: VOMITING
     Dates: start: 20201009, end: 20201009
  5. OMEPRAZOLE SODIUM [Concomitant]
     Active Substance: OMEPRAZOLE SODIUM
     Dates: start: 20201009, end: 20201009
  6. BUCINNAZINE HYDROCHLORIDE [Concomitant]
     Indication: ANALGESIC THERAPY
     Dates: start: 20201030, end: 20201030
  7. AMBROXOL HYDROCHLORIDE [Concomitant]
     Active Substance: AMBROXOL HYDROCHLORIDE
     Indication: PRODUCTIVE COUGH
  8. PEMETREXED. [Suspect]
     Active Substance: PEMETREXED
     Indication: NON-SMALL CELL LUNG CANCER
     Dosage: ON 09/OCT/2020, SHE RECEIVED MOST RECENT DOSE (624 MG) OF STUDY DRUG PRIOR TO AE/SAE ONSET
     Route: 042
     Dates: start: 20200525
  9. DEXAMETHASONE ACETATE [Concomitant]
     Active Substance: DEXAMETHASONE ACETATE
     Indication: ALLERGY PROPHYLAXIS
     Route: 048
     Dates: start: 20201008, end: 20201011
  10. LACTULOSE. [Concomitant]
     Active Substance: LACTULOSE
     Indication: CONSTIPATION
     Dates: start: 20201031, end: 20201031
  11. COMPOUND AMINO ACID INJECTION (15AA) [Concomitant]
     Active Substance: AMINO ACIDS, SOURCE UNSPECIFIED
     Indication: PROPHYLAXIS
     Dates: start: 20201029, end: 20201113
  12. PALONOSETRON HYDROCHLORIDE. [Concomitant]
     Active Substance: PALONOSETRON HYDROCHLORIDE
     Dates: start: 20201030, end: 20201030
  13. HEPARIN SODIUM. [Concomitant]
     Active Substance: HEPARIN SODIUM
     Indication: PROPHYLAXIS
     Dates: start: 20201027, end: 20201028
  14. LANSOPRAZOLE. [Concomitant]
     Active Substance: LANSOPRAZOLE
     Indication: PROPHYLAXIS
     Dates: start: 20200805, end: 20201020
  15. PEGYLATED RECOMBINANT HUMAN GRANULOCYTE COLONY STIMULATING FACTOR [Concomitant]
     Dates: start: 20201011, end: 20201011
  16. COMPOUND PLATYCODON [Concomitant]
     Indication: COUGH
     Dates: start: 20200507
  17. ATEZOLIZUMAB. [Suspect]
     Active Substance: ATEZOLIZUMAB
     Indication: NON-SMALL CELL LUNG CANCER
     Dosage: DAY 1 OF EACH 21?DAY CYCLE UNTIL UNACCEPTABLE TOXICITY OR LOSS OF CLINICAL BENEFIT?ON 09/OCT/2020, S
     Route: 042
     Dates: start: 20200525
  18. PARACETAMOL;TRAMADOL [Concomitant]
     Active Substance: ACETAMINOPHEN\TRAMADOL
     Indication: ANALGESIC THERAPY
     Dates: start: 20201029, end: 20201113
  19. MORPHINE HYDROCHLORIDE [Concomitant]
     Active Substance: MORPHINE HYDROCHLORIDE
     Indication: ANALGESIC THERAPY
     Dates: start: 20201030, end: 20201113
  20. MANNITOL. [Concomitant]
     Active Substance: MANNITOL
     Indication: OEDEMA
     Dates: start: 20201030, end: 20201113
  21. RACEANISODAMINE HYDROCHLORIDE [Concomitant]
     Indication: ANALGESIC THERAPY
     Dates: start: 20201029, end: 20201029
  22. AMBROXOL HYDROCHLORIDE [Concomitant]
     Active Substance: AMBROXOL HYDROCHLORIDE
     Indication: COUGH
     Dates: start: 20201027, end: 20201112
  23. CARRIZUMAB [Concomitant]
     Dates: start: 20201106, end: 20201106
  24. LIDOCAINE HYDROCHLORIDE. [Concomitant]
     Active Substance: LIDOCAINE HYDROCHLORIDE
     Indication: LOCAL ANAESTHESIA
     Dates: start: 20201028, end: 20201028
  25. METOCLOPRAMIDE DIHYDROCHLORIDE [Concomitant]
     Indication: VOMITING
     Dates: start: 20201030, end: 20201030
  26. COMPOUND PLATYCODON [Concomitant]
     Indication: COUGH
  27. FISH OIL [Concomitant]
     Active Substance: FISH OIL
     Dosage: FISH OIL WHOLE PROTEIN COMPLEX NUTRITIONAL?EMULSION
     Dates: start: 20201029, end: 20201029

REACTIONS (1)
  - Epistaxis [Recovered/Resolved]

NARRATIVE: CASE EVENT DATE: 20201023
